FAERS Safety Report 9272228 (Version 1)
Quarter: 2013Q2

REPORT INFORMATION
  Report Type: Spontaneous
  Country: US (occurrence: US)
  Receive Date: 20130506
  Receipt Date: 20130506
  Transmission Date: 20140414
  Serious: Yes (Hospitalization)
  Sender: FDA-Public Use
  Company Number: US-BAYER-2013-054241

PATIENT
  Age: 23 Year
  Sex: Female
  Weight: 48.98 kg

DRUGS (2)
  1. BEYAZ [Suspect]
     Dosage: UNK
  2. FLAGYL [Concomitant]
     Dosage: UNK

REACTIONS (1)
  - Pulmonary embolism [None]
